FAERS Safety Report 16712466 (Version 1)
Quarter: 2019Q3

REPORT INFORMATION
  Report Type: Report from Study
  Country: CA (occurrence: CA)
  Receive Date: 20190816
  Receipt Date: 20190816
  Transmission Date: 20191004
  Serious: Yes (Other)
  Sender: FDA-Public Use
  Company Number: CA-GLAXOSMITHKLINE-CA2019AMR147202

PATIENT
  Sex: Male

DRUGS (3)
  1. ATROVENT [Suspect]
     Active Substance: IPRATROPIUM BROMIDE
     Indication: PRODUCT USED FOR UNKNOWN INDICATION
     Dosage: UNK
  2. SALBUTAMOL SULPHATE [Suspect]
     Active Substance: ALBUTEROL SULFATE
     Indication: PRODUCT USED FOR UNKNOWN INDICATION
     Dosage: UNK
  3. ADVAIR HFA [Suspect]
     Active Substance: FLUTICASONE PROPIONATE\SALMETEROL XINAFOATE
     Indication: PRODUCT USED FOR UNKNOWN INDICATION
     Dosage: UNK

REACTIONS (19)
  - Sleep apnoea syndrome [Unknown]
  - Fatigue [Unknown]
  - Irritability [Unknown]
  - Initial insomnia [Unknown]
  - Poor quality sleep [Unknown]
  - Headache [Unknown]
  - Bronchiectasis [Unknown]
  - Apnoea [Unknown]
  - Spondylitis [Unknown]
  - Nerve injury [Unknown]
  - Fibromyalgia [Unknown]
  - Sinusitis [Unknown]
  - Therapeutic product effect incomplete [Unknown]
  - Asthma [Unknown]
  - Snoring [Unknown]
  - Discomfort [Unknown]
  - Dust allergy [Unknown]
  - Somnolence [Unknown]
  - Gastrooesophageal reflux disease [Unknown]
